FAERS Safety Report 6438269-4 (Version None)
Quarter: 2009Q4

REPORT INFORMATION
  Report Type: 
  Country: None (occurrence: None)
  Receive Date: 20091112
  Receipt Date: 20091030
  Transmission Date: 20100525
  Serious: Yes (Other)
  Sender: FDA-Public Use
  Company Number: PHHY2009CN48462

PATIENT

DRUGS (1)
  1. SANDOSTATIN [Suspect]
     Route: 064

REACTIONS (3)
  - APGAR SCORE LOW [None]
  - PREMATURE BABY [None]
  - SMALL FOR DATES BABY [None]
